APPROVED DRUG PRODUCT: DEXTROSE 10% AND SODIUM CHLORIDE 0.9% IN PLASTIC CONTAINER
Active Ingredient: DEXTROSE; SODIUM CHLORIDE
Strength: 10GM/100ML;900MG/100ML
Dosage Form/Route: INJECTABLE;INJECTION
Application: N016696 | Product #001
Applicant: BAXTER HEALTHCARE CORP
Approved: Approved Prior to Jan 1, 1982 | RLD: No | RS: No | Type: DISCN